FAERS Safety Report 4881266-0 (Version None)
Quarter: 2005Q4

REPORT INFORMATION
  Report Type: 
  Country: None (occurrence: None)
  Receive Date: 20051201
  Receipt Date: 20050728
  Transmission Date: 20060501
  Serious: No
  Sender: FDA-Public Use
  Company Number: 2005PV000675

PATIENT
  Age: 51 Year
  Sex: Male
  Weight: 126.1 kg

DRUGS (8)
  1. BYETTA [Suspect]
     Indication: DIABETES MELLITUS NON-INSULIN-DEPENDENT
     Dosage: 5 MCG;BID;SC
     Route: 058
     Dates: start: 20050728
  2. ACTOS [Concomitant]
  3. FORDAMET [Concomitant]
  4. GABAPENTIN [Concomitant]
  5. GABTRIL [Concomitant]
  6. OXYCONTIN [Concomitant]
  7. CYMBALTA [Concomitant]
  8. SAW PALMENTO [Concomitant]

REACTIONS (3)
  - CHILLS [None]
  - NAUSEA [None]
  - VOMITING [None]
